FAERS Safety Report 8066579-6 (Version None)
Quarter: 2012Q1

REPORT INFORMATION
  Report Type: 
  Country: None (occurrence: None)
  Receive Date: 20120124
  Receipt Date: 20120118
  Transmission Date: 20120608
  Serious: Yes (Other)
  Sender: FDA-Public Use
  Company Number: PHHY2012DE004640

PATIENT
  Sex: Female

DRUGS (3)
  1. METOPROLOL TARTRATE [Concomitant]
     Dosage: 75 MG, UNK
     Route: 048
  2. DIOVAN [Suspect]
     Indication: HYPERTENSION
     Dosage: 1 DF, BID
     Route: 048
     Dates: start: 20110501
  3. AMLODIPINE [Concomitant]
     Dosage: 1 DF, QD
     Route: 048

REACTIONS (5)
  - RED BLOOD CELL SEDIMENTATION RATE INCREASED [None]
  - ANTIPHOSPHOLIPID ANTIBODIES POSITIVE [None]
  - C-REACTIVE PROTEIN INCREASED [None]
  - SYSTEMIC LUPUS ERYTHEMATOSUS [None]
  - HAEMATURIA [None]
